FAERS Safety Report 14425136 (Version 2)
Quarter: 2018Q1

REPORT INFORMATION
  Report Type: Spontaneous
  Country: FR (occurrence: FR)
  Receive Date: 20180123
  Receipt Date: 20180302
  Transmission Date: 20180509
  Serious: Yes (Disabling)
  Sender: FDA-Public Use
  Company Number: FR-JNJFOC-20180125511

PATIENT
  Age: 41 Year
  Sex: Female

DRUGS (6)
  1. EPITOMAX [Suspect]
     Active Substance: TOPIRAMATE
     Indication: MIGRAINE PROPHYLAXIS
     Route: 048
     Dates: start: 20160414
  2. CITALOPRAM [Concomitant]
     Active Substance: CITALOPRAM HYDROBROMIDE
     Indication: PRODUCT USED FOR UNKNOWN INDICATION
     Route: 065
  3. PRAZOLAM [Concomitant]
     Indication: PRODUCT USED FOR UNKNOWN INDICATION
     Route: 065
  4. VALIUM [Concomitant]
     Active Substance: DIAZEPAM
     Indication: SLEEP DISORDER THERAPY
     Route: 065
  5. SEROPLEX [Concomitant]
     Active Substance: ESCITALOPRAM OXALATE
     Indication: PRODUCT USED FOR UNKNOWN INDICATION
     Route: 065
  6. EPITOMAX [Suspect]
     Active Substance: TOPIRAMATE
     Indication: MIGRAINE PROPHYLAXIS
     Route: 048
     Dates: start: 20131121, end: 20160310

REACTIONS (18)
  - Abdominal pain lower [Not Recovered/Not Resolved]
  - Amnesia [Unknown]
  - Periarthritis [Unknown]
  - Seborrhoeic dermatitis [Not Recovered/Not Resolved]
  - Decreased interest [Unknown]
  - Peripheral coldness [Unknown]
  - Tendonitis [Not Recovered/Not Resolved]
  - Lacrimation increased [Unknown]
  - Sensory disturbance [Unknown]
  - Dyspepsia [Unknown]
  - Thirst [Unknown]
  - Hallucination [Not Recovered/Not Resolved]
  - Gastrointestinal motility disorder [Unknown]
  - Weight decreased [Unknown]
  - Tinnitus [Unknown]
  - Abdominal pain upper [Unknown]
  - Decreased appetite [Unknown]
  - Rhinorrhoea [Unknown]

NARRATIVE: CASE EVENT DATE: 201401
